FAERS Safety Report 8790560 (Version 1)
Quarter: 2012Q4

REPORT INFORMATION
  Report Type: Spontaneous
  Country: US (occurrence: None)
  Receive Date: 20120912
  Receipt Date: 20120912
  Transmission Date: 20130627
  Serious: No
  Sender: FDA-Public Use
  Company Number: None

PATIENT
  Age: 65 Year
  Sex: Female
  Weight: 107.6 kg

DRUGS (1)
  1. MORPHINE [Suspect]
     Indication: THROAT SWELLING
     Route: 042
     Dates: start: 20120511, end: 20120512

REACTIONS (1)
  - Pharyngeal oedema [None]
